FAERS Safety Report 17846348 (Version 1)
Quarter: 2020Q2

REPORT INFORMATION
  Report Type: Spontaneous
  Country: US (occurrence: US)
  Receive Date: 20200530
  Receipt Date: 20200530
  Transmission Date: 20200714
  Serious: Yes (Hospitalization)
  Sender: FDA-Public Use
  Company Number: None

PATIENT
  Sex: Female
  Weight: 160.3 kg

DRUGS (1)
  1. REMDESIVIR (EUA) [Suspect]
     Active Substance: REMDESIVIR

REACTIONS (1)
  - Infusion site pain [None]
